FAERS Safety Report 4629933-8 (Version None)
Quarter: 2005Q2

REPORT INFORMATION
  Report Type: 
  Country: None (occurrence: None)
  Receive Date: 20050408
  Receipt Date: 20050224
  Transmission Date: 20051028
  Serious: Yes (Other)
  Sender: FDA-Public Use
  Company Number: JP-ROCHE-397062

PATIENT
  Age: 89 Year
  Sex: Female

DRUGS (9)
  1. TAMIFLU [Suspect]
     Route: 048
     Dates: start: 20050221, end: 20050222
  2. TAMIFLU [Suspect]
     Route: 048
     Dates: start: 20050223, end: 20050223
  3. NERIPROCT SUPPOSITORIES [Concomitant]
     Indication: DRUG USE FOR UNKNOWN INDICATION
     Route: 061
     Dates: start: 20050225
  4. FOIPAN [Concomitant]
     Indication: DRUG USE FOR UNKNOWN INDICATION
     Route: 048
     Dates: start: 20001015
  5. URSO 250 [Concomitant]
     Indication: DRUG USE FOR UNKNOWN INDICATION
     Dosage: FORM: ORAL (NOS)
     Route: 048
     Dates: start: 20001015
  6. TAKEPRON [Concomitant]
     Indication: DRUG USE FOR UNKNOWN INDICATION
     Dosage: FORM: ORAL (NOS).
     Route: 048
     Dates: start: 20010215
  7. AMLODIN [Concomitant]
     Indication: DRUG USE FOR UNKNOWN INDICATION
     Route: 048
     Dates: start: 20010615
  8. ACECOL [Concomitant]
     Indication: DRUG USE FOR UNKNOWN INDICATION
     Route: 048
     Dates: start: 20011015
  9. MERISLON [Concomitant]
     Indication: DRUG USE FOR UNKNOWN INDICATION
     Route: 048
     Dates: start: 20030915

REACTIONS (1)
  - WHITE BLOOD CELL COUNT DECREASED [None]
